FAERS Safety Report 25688482 (Version 1)
Quarter: 2025Q3

REPORT INFORMATION
  Report Type: Spontaneous
  Country: GB (occurrence: GB)
  Receive Date: 20250818
  Receipt Date: 20250818
  Transmission Date: 20251020
  Serious: Yes (Other)
  Sender: CELLTRION
  Company Number: GB-JNJFOC-20250803393

PATIENT

DRUGS (6)
  1. RITUXIMAB [Suspect]
     Active Substance: RITUXIMAB
     Indication: Product used for unknown indication
  2. IMBRUVICA [Suspect]
     Active Substance: IBRUTINIB
     Indication: Chronic lymphocytic leukaemia
     Route: 048
     Dates: start: 202008
  3. BENDAMUSTINE [Suspect]
     Active Substance: BENDAMUSTINE
     Indication: Chronic lymphocytic leukaemia
  4. FLUDARABINE [Suspect]
     Active Substance: FLUDARABINE PHOSPHATE
     Indication: Product used for unknown indication
  5. FLUDARABINE [Suspect]
     Active Substance: FLUDARABINE PHOSPHATE
  6. RITUXIMAB [Suspect]
     Active Substance: RITUXIMAB

REACTIONS (3)
  - Renal impairment [Unknown]
  - Haemorrhage [Recovered/Resolved]
  - Musculoskeletal disorder [Recovered/Resolved]
